FAERS Safety Report 25418330 (Version 1)
Quarter: 2025Q2

REPORT INFORMATION
  Report Type: Spontaneous
  Country: US (occurrence: None)
  Receive Date: 20250606
  Receipt Date: 20250606
  Transmission Date: 20250717
  Serious: Yes (Hospitalization)
  Sender: FDA-CTU
  Company Number: None

PATIENT
  Age: 78 Year
  Sex: Male

DRUGS (1)
  1. MEMANTINE HCL [Suspect]
     Active Substance: MEMANTINE HYDROCHLORIDE
     Indication: Dementia

REACTIONS (3)
  - Orthostatic hypotension [None]
  - Therapy change [None]
  - Hypovolaemia [None]

NARRATIVE: CASE EVENT DATE: 20250518
